FAERS Safety Report 8439146 (Version 2)
Quarter: 2013Q2

REPORT INFORMATION
  Report Type: Spontaneous
  Country: US (occurrence: None)
  Receive Date: 20120104
  Receipt Date: 20120508
  Transmission Date: 20140414
  Serious: Yes (Other)
  Sender: FDA-Public Use
  Company Number: 2011HGS-002739

PATIENT
  Age: 42 Year
  Sex: Female
  Weight: 84.82 kg

DRUGS (14)
  1. BENLYSTA [Suspect]
     Indication: SYSTEMIC LUPUS ERYTHEMATOSUS
     Dosage: 1 IN 2 WK, INTRAVENOUS DRIP
     Route: 041
     Dates: start: 20111013, end: 20111024
  2. BENLYSTA [Suspect]
     Indication: SYSTEMIC LUPUS ERYTHEMATOSUS
     Dosage: 1 IN 2 WK, INTRAVENOUS DRIP
     Route: 041
     Dates: start: 20111013, end: 20111024
  3. IMURAN [Concomitant]
  4. PRILOSEC (OMEPRAZOLE) [Concomitant]
  5. ZANTAC [Concomitant]
  6. EFFEXOR XR (VENLAFAXINE HYDROCHLORIDE) (75 MILLIGRAM, CAPSULE) (VENLAFAXINE HYDROCHLORIDE) [Concomitant]
  7. LISINOPRIL [Concomitant]
  8. NEURONTIN [Concomitant]
  9. COUMADIN [Concomitant]
  10. FOSAMAX [Concomitant]
  11. IMITREX (SUMATRIPTAN) [Concomitant]
  12. NORCO (VICODIN) (PARACETAMOL, HYDROCODONE BITARTRATE) [Concomitant]
  13. MOTRIN OTC (IBUPROFEN) [Concomitant]
  14. PREDNISONE [Concomitant]

REACTIONS (1)
  - RASH GENERALISED [None]
